FAERS Safety Report 16646355 (Version 3)
Quarter: 2019Q4

REPORT INFORMATION
  Report Type: Report from Study
  Country: US (occurrence: US)
  Receive Date: 20190730
  Receipt Date: 20191126
  Transmission Date: 20200122
  Serious: Yes (Death, Hospitalization)
  Sender: FDA-Public Use
  Company Number: US-ROCHE-2365158

PATIENT
  Age: 63 Year
  Sex: Female

DRUGS (3)
  1. TECENTRIQ [Suspect]
     Active Substance: ATEZOLIZUMAB
     Route: 042
     Dates: start: 20190515, end: 20190515
  2. TECENTRIQ [Suspect]
     Active Substance: ATEZOLIZUMAB
     Indication: TRIPLE NEGATIVE BREAST CANCER
     Dosage: ONGOING : NO
     Route: 065
     Dates: start: 20190523
  3. ABRAXANE [Concomitant]
     Active Substance: PACLITAXEL
     Indication: TRIPLE NEGATIVE BREAST CANCER
     Dosage: ONGOING : NO
     Route: 065

REACTIONS (6)
  - Sepsis [Fatal]
  - Diarrhoea [Not Recovered/Not Resolved]
  - Colitis [Fatal]
  - Death [Fatal]
  - Clostridium difficile colitis [Fatal]
  - Pulmonary embolism [Not Recovered/Not Resolved]

NARRATIVE: CASE EVENT DATE: 20190517
